FAERS Safety Report 6007097-6 (Version None)
Quarter: 2008Q4

REPORT INFORMATION
  Report Type: 
  Country: None (occurrence: None)
  Receive Date: 20081217
  Receipt Date: 20080111
  Transmission Date: 20090506
  Serious: No
  Sender: FDA-Public Use
  Company Number: US-ASTRAZENECA-2008UW00755

PATIENT
  Age: 61 Year
  Sex: Female
  Weight: 52.2 kg

DRUGS (4)
  1. CRESTOR [Suspect]
     Route: 048
     Dates: start: 20071001
  2. CRESTOR [Suspect]
     Route: 048
     Dates: start: 20071101
  3. ALTACE [Concomitant]
  4. LEVOXYL [Concomitant]
     Indication: THYROID DISORDER

REACTIONS (1)
  - ILL-DEFINED DISORDER [None]
